FAERS Safety Report 9768954 (Version 1)
Quarter: 2013Q4

REPORT INFORMATION
  Report Type: Spontaneous
  Country: US (occurrence: US)
  Receive Date: 20131218
  Receipt Date: 20131218
  Transmission Date: 20140711
  Serious: No
  Sender: FDA-Public Use
  Company Number: US-BAYER-2013-154679

PATIENT
  Age: 44 Year
  Sex: Female
  Weight: 60.32 kg

DRUGS (1)
  1. YAZ [Suspect]
     Indication: CONTRACEPTION
     Dosage: 1 DF, QD
     Dates: start: 200702, end: 200712

REACTIONS (5)
  - Menstruation irregular [Not Recovered/Not Resolved]
  - Cystitis interstitial [Recovered/Resolved]
  - Smear cervix abnormal [None]
  - Pain [None]
  - Vulvovaginal discomfort [None]
